FAERS Safety Report 6058638-4 (Version None)
Quarter: 2009Q1

REPORT INFORMATION
  Report Type: 
  Country: None (occurrence: None)
  Receive Date: 20090130
  Receipt Date: 20090121
  Transmission Date: 20090719
  Serious: Yes (Hospitalization)
  Sender: FDA-Public Use
  Company Number: IN-PFIZER INC-2008044534

PATIENT

DRUGS (2)
  1. LAMOTRIGINE [Suspect]
     Indication: PARTIAL SEIZURES
     Route: 048
     Dates: start: 20071214
  2. BLINDED PREGABALIN [Suspect]
     Indication: PARTIAL SEIZURES
     Route: 048
     Dates: start: 20071214

REACTIONS (2)
  - PARTIAL SEIZURES [None]
  - STATUS EPILEPTICUS [None]
